FAERS Safety Report 21958025 (Version 1)
Quarter: 2023Q1

REPORT INFORMATION
  Report Type: Spontaneous
  Country: US (occurrence: US)
  Receive Date: 20230206
  Receipt Date: 20230206
  Transmission Date: 20230417
  Serious: No
  Sender: FDA-Public Use
  Company Number: US-SA-SAC20230202000169

PATIENT
  Sex: Male
  Weight: 97.06 kg

DRUGS (26)
  1. DUPIXENT [Suspect]
     Active Substance: DUPILUMAB
     Indication: Dermatitis atopic
     Dosage: 300 MG, QOW
     Route: 058
     Dates: start: 2019
  2. EPINEPHRINE [Concomitant]
     Active Substance: EPINEPHRINE
  3. VITAMIN B12 [Concomitant]
     Active Substance: CYANOCOBALAMIN
  4. BETAMETHASONE DIPROPIONATE [Concomitant]
     Active Substance: BETAMETHASONE DIPROPIONATE
  5. OPZELURA [Concomitant]
     Active Substance: RUXOLITINIB PHOSPHATE
  6. CLOBETASOL PROPIONATE [Concomitant]
     Active Substance: CLOBETASOL PROPIONATE
  7. THIAMINE HYDROCHLORIDE [Concomitant]
     Active Substance: THIAMINE HYDROCHLORIDE
  8. VERAPAMIL [Concomitant]
     Active Substance: VERAPAMIL HYDROCHLORIDE
  9. METFORMIN HYDROCHLORIDE [Concomitant]
     Active Substance: METFORMIN HYDROCHLORIDE
  10. ALBUTEROL SULFATE [Concomitant]
     Active Substance: ALBUTEROL SULFATE
  11. LEVALBUTEROL TARTRATE [Concomitant]
     Active Substance: LEVALBUTEROL TARTRATE
  12. ATORVASTATIN CALCIUM [Concomitant]
     Active Substance: ATORVASTATIN CALCIUM
  13. VITAMIN D NOS [Concomitant]
     Active Substance: VITAMIN D NOS
  14. NEURIVAS [Concomitant]
  15. MODERNA COVID-19 VACCINE [Concomitant]
     Active Substance: ELASOMERAN
  16. FISH OIL [Concomitant]
     Active Substance: FISH OIL
  17. ASPIRIN [Concomitant]
     Active Substance: ASPIRIN
  18. ZINC [Concomitant]
     Active Substance: ZINC
  19. PROTOPIC [Concomitant]
     Active Substance: TACROLIMUS
  20. BREO ELLIPTA [Concomitant]
     Active Substance: FLUTICASONE FUROATE\VILANTEROL TRIFENATATE
  21. PROBIOTICS NOS [Concomitant]
     Active Substance: PROBIOTICS NOS
  22. LUTEIN-ZEAXANTHIN [Concomitant]
  23. HERBALS\TURMERIC [Concomitant]
     Active Substance: HERBALS\TURMERIC
  24. COENZYME Q10 [Concomitant]
     Active Substance: DIETARY SUPPLEMENT\UBIDECARENONE
  25. VITAMIN C [Concomitant]
     Active Substance: ASCORBIC ACID
  26. CETIRIZINE HYDROCHLORIDE [Concomitant]
     Active Substance: CETIRIZINE HYDROCHLORIDE

REACTIONS (7)
  - Stress [Not Recovered/Not Resolved]
  - Dry skin [Not Recovered/Not Resolved]
  - Skin burning sensation [Not Recovered/Not Resolved]
  - Erythema [Not Recovered/Not Resolved]
  - Skin exfoliation [Not Recovered/Not Resolved]
  - Dermatitis atopic [Not Recovered/Not Resolved]
  - Pruritus [Not Recovered/Not Resolved]
